FAERS Safety Report 13404521 (Version 1)
Quarter: 2017Q2

REPORT INFORMATION
  Report Type: Spontaneous
  Country: RO (occurrence: RO)
  Receive Date: 20170405
  Receipt Date: 20170405
  Transmission Date: 20170830
  Serious: Yes (Other)
  Sender: FDA-Public Use
  Company Number: RO-ROCHE-1915679

PATIENT
  Age: 59 Year
  Sex: Female

DRUGS (7)
  1. ADALIMUMAB [Concomitant]
     Active Substance: ADALIMUMAB
  2. TOCILIZUMAB [Suspect]
     Active Substance: TOCILIZUMAB
     Route: 042
     Dates: start: 201603
  3. MEDROL [Concomitant]
     Active Substance: METHYLPREDNISOLONE
  4. METHOTREXATE. [Concomitant]
     Active Substance: METHOTREXATE
  5. SULFASALAZINE. [Concomitant]
     Active Substance: SULFASALAZINE
     Indication: RHEUMATOID ARTHRITIS
     Route: 065
     Dates: start: 2014
  6. TOCILIZUMAB [Suspect]
     Active Substance: TOCILIZUMAB
     Indication: RHEUMATOID ARTHRITIS
     Route: 042
     Dates: start: 201601, end: 201603
  7. LEFLUNOMIDE. [Concomitant]
     Active Substance: LEFLUNOMIDE
     Indication: RHEUMATOID ARTHRITIS
     Route: 065
     Dates: start: 201304

REACTIONS (5)
  - Acute myocardial infarction [Unknown]
  - Inflammation [Unknown]
  - Dyslipidaemia [Unknown]
  - Anaemia [Unknown]
  - Transaminases increased [Unknown]

NARRATIVE: CASE EVENT DATE: 20160412
